FAERS Safety Report 4375419-8 (Version None)
Quarter: 2004Q2

REPORT INFORMATION
  Report Type: 
  Country: None (occurrence: None)
  Receive Date: 20040527
  Receipt Date: 20040521
  Transmission Date: 20050107
  Serious: Yes (Other)
  Sender: FDA-Public Use
  Company Number: 200410091BBE

PATIENT
  Age: 16 Year
  Sex: Female
  Weight: 66.2252 kg

DRUGS (1)
  1. GAMUNEX [Suspect]
     Dosage: 25 G, OM, INTRAVENOUS
     Route: 042

REACTIONS (1)
  - MENINGITIS ASEPTIC [None]
